FAERS Safety Report 22123639 (Version 4)
Quarter: 2023Q4

REPORT INFORMATION
  Report Type: Report from Study
  Country: MX (occurrence: MX)
  Receive Date: 20230322
  Receipt Date: 20231226
  Transmission Date: 20240109
  Serious: Yes (Other)
  Sender: FDA-Public Use
  Company Number: MX-002147023-NVSC2023MX033538

PATIENT
  Age: 62 Year
  Sex: Male
  Weight: 85 kg

DRUGS (3)
  1. COSENTYX [Suspect]
     Active Substance: SECUKINUMAB
     Indication: Psoriasis
     Dosage: 2 DOSAGE FORM, QMO (2 OF 150 MG)
     Route: 058
     Dates: start: 20221108
  2. COSENTYX [Suspect]
     Active Substance: SECUKINUMAB
     Dosage: 2 DOSAGE FORM, QMO
     Route: 058
  3. CETAPHIL DAILY FACIAL MOISTURIZER WITH SUNCREEN SPF 50 [Concomitant]
     Active Substance: OCTINOXATE\OCTISALATE\OCTOCRYLENE\OXYBENZONE\TITANIUM DIOXIDE
     Indication: Product used for unknown indication
     Dosage: UNK (CETAPHIL PRO 10 APPLY TO THE BODY AFTER BATHING)
     Route: 061

REACTIONS (10)
  - Blood pressure increased [Recovering/Resolving]
  - Skin lesion [Unknown]
  - Psoriasis [Recovered/Resolved]
  - Hyperphagia [Unknown]
  - Glucose tolerance impaired [Unknown]
  - Dyslipidaemia [Unknown]
  - Hypertension [Unknown]
  - Osteoarthritis [Unknown]
  - Scoliosis [Unknown]
  - Off label use [Not Recovered/Not Resolved]

NARRATIVE: CASE EVENT DATE: 20221101
